FAERS Safety Report 17015383 (Version 1)
Quarter: 2019Q4

REPORT INFORMATION
  Report Type: Spontaneous
  Country: US (occurrence: US)
  Receive Date: 20191003
  Receipt Date: 20191003
  Transmission Date: 20200122
  Serious: Yes (Other)
  Sender: FDA-Public Use
  Company Number: None

PATIENT
  Age: 23 Year
  Sex: Male

DRUGS (1)
  1. DESCOVY [Suspect]
     Active Substance: EMTRICITABINE\TENOFOVIR ALAFENAMIDE FUMARATE
     Indication: DRUG THERAPY
     Dosage: ?          OTHER DOSE:NA;?
     Route: 048
     Dates: start: 201910

REACTIONS (1)
  - Off label use [None]

NARRATIVE: CASE EVENT DATE: 20191003
